FAERS Safety Report 15468324 (Version 10)
Quarter: 2021Q1

REPORT INFORMATION
  Report Type: Report from Study
  Country: CA (occurrence: CA)
  Receive Date: 20181005
  Receipt Date: 20210104
  Transmission Date: 20210419
  Serious: Yes (Other)
  Sender: FDA-Public Use
  Company Number: PHHY2017CA071814

PATIENT
  Age: 57 Year
  Sex: Female

DRUGS (4)
  1. GILENYA [Suspect]
     Active Substance: FINGOLIMOD HYDROCHLORIDE
     Dosage: UNK
     Route: 065
     Dates: start: 201806
  2. GILENYA [Suspect]
     Active Substance: FINGOLIMOD HYDROCHLORIDE
     Indication: RELAPSING-REMITTING MULTIPLE SCLEROSIS
     Dosage: UNK
     Route: 048
     Dates: end: 20160530
  3. GILENYA [Suspect]
     Active Substance: FINGOLIMOD HYDROCHLORIDE
     Dosage: UNK
     Route: 048
  4. GILENYA [Suspect]
     Active Substance: FINGOLIMOD HYDROCHLORIDE
     Dosage: UNK
     Route: 065

REACTIONS (32)
  - Dry eye [Unknown]
  - Somnolence [Not Recovered/Not Resolved]
  - Contusion [Not Recovered/Not Resolved]
  - Neuritis [Unknown]
  - Endocrine disorder [Unknown]
  - Abdominal mass [Unknown]
  - Muscle spasms [Unknown]
  - Nephrolithiasis [Not Recovered/Not Resolved]
  - Joint swelling [Unknown]
  - Scar [Unknown]
  - Rash [Unknown]
  - Eye pain [Unknown]
  - Ovarian cyst [Unknown]
  - Muscle strain [Unknown]
  - Peripheral swelling [Unknown]
  - Hypersensitivity [Unknown]
  - Weight increased [Unknown]
  - Swelling [Unknown]
  - Pain [Unknown]
  - Fall [Unknown]
  - Oedema peripheral [Unknown]
  - Dyspnoea [Unknown]
  - Infection [Unknown]
  - Pain [Recovered/Resolved]
  - Pain in extremity [Unknown]
  - Ingrowing nail [Unknown]
  - Abdominal pain [Unknown]
  - Oral herpes [Unknown]
  - Fatigue [Unknown]
  - Swelling of eyelid [Unknown]
  - Localised infection [Unknown]
  - Cystitis [Unknown]

NARRATIVE: CASE EVENT DATE: 201809
